FAERS Safety Report 9706220 (Version 1)
Quarter: 2013Q4

REPORT INFORMATION
  Report Type: Spontaneous
  Country: US (occurrence: US)
  Receive Date: 20131125
  Receipt Date: 20131125
  Transmission Date: 20140711
  Serious: Yes (Hospitalization, Other)
  Sender: FDA-Public Use
  Company Number: US-AMGEN-USASP2013082390

PATIENT
  Age: 56 Year
  Sex: Male

DRUGS (3)
  1. ENBREL [Suspect]
     Indication: PRODUCT USED FOR UNKNOWN INDICATION
     Dosage: 50 MG, QWK
     Route: 065
     Dates: start: 20131114
  2. TUMS [Suspect]
     Indication: NAUSEA
     Dosage: UNK
     Route: 065
  3. TUMS [Suspect]
     Indication: VOMITING

REACTIONS (11)
  - Pain [Not Recovered/Not Resolved]
  - Hypertension [Recovered/Resolved]
  - Nausea [Recovering/Resolving]
  - Vomiting [Recovering/Resolving]
  - Blood calcium increased [Unknown]
  - Hot flush [Recovering/Resolving]
  - Chills [Recovering/Resolving]
  - Headache [Recovering/Resolving]
  - Dizziness [Recovering/Resolving]
  - Aphagia [Recovering/Resolving]
  - Paraesthesia oral [Recovered/Resolved]
